FAERS Safety Report 7217072-1 (Version None)
Quarter: 2011Q1

REPORT INFORMATION
  Report Type: 
  Country: None (occurrence: None)
  Receive Date: 20110110
  Receipt Date: 20101228
  Transmission Date: 20110831
  Serious: Yes (Hospitalization, Other)
  Sender: FDA-Public Use
  Company Number: US-ELI_LILLY_AND_COMPANY-US201101000197

PATIENT
  Sex: Male

DRUGS (1)
  1. ZYPREXA [Suspect]

REACTIONS (11)
  - SEXUAL DYSFUNCTION [None]
  - BLINDNESS [None]
  - BLOOD PRESSURE ABNORMAL [None]
  - DEPRESSION [None]
  - QUALITY OF LIFE DECREASED [None]
  - FEAR [None]
  - HEART RATE INCREASED [None]
  - HOSPITALISATION [None]
  - EMOTIONAL DISTRESS [None]
  - SUICIDAL BEHAVIOUR [None]
  - CARDIAC DISORDER [None]
